FAERS Safety Report 4325145-6 (Version None)
Quarter: 2004Q1

REPORT INFORMATION
  Report Type: 
  Country: None (occurrence: None)
  Receive Date: 20040323
  Receipt Date: 20040128
  Transmission Date: 20041129
  Serious: No
  Sender: FDA-Public Use
  Company Number: USA040157834

PATIENT
  Sex: Male

DRUGS (2)
  1. CIALIS [Suspect]
     Dates: start: 20040113
  2. PHENOBARBITAL TAB [Concomitant]

REACTIONS (1)
  - DRUG INEFFECTIVE [None]
